FAERS Safety Report 4793492-X (Version None)
Quarter: 2005Q4

REPORT INFORMATION
  Report Type: 
  Country: None (occurrence: None)
  Receive Date: 20051011
  Receipt Date: 20050906
  Transmission Date: 20060501
  Serious: Yes (Other)
  Sender: FDA-Public Use
  Company Number: US-BRISTOL-MYERS SQUIBB COMPANY-13100599

PATIENT
  Age: 66 Year
  Sex: Male
  Weight: 86 kg

DRUGS (9)
  1. GLUCOPHAGE XR [Suspect]
     Indication: DIABETES MELLITUS
  2. GLIPIZIDE [Concomitant]
  3. AVANDIA [Concomitant]
  4. ISOSORBIDE [Concomitant]
  5. GEMFIBROZIL [Concomitant]
  6. METOPROLOL [Concomitant]
  7. ASPIRIN [Concomitant]
  8. FOLIC ACID [Concomitant]
  9. LISINOPRIL [Concomitant]

REACTIONS (1)
  - BLOOD GLUCOSE INCREASED [None]
